FAERS Safety Report 10700876 (Version 2)
Quarter: 2015Q1

REPORT INFORMATION
  Report Type: Spontaneous
  Country: ES (occurrence: ES)
  Receive Date: 20150109
  Receipt Date: 20150122
  Transmission Date: 20150721
  Serious: Yes (Death)
  Sender: FDA-Public Use
  Company Number: ES-009507513-1501ESP000435

PATIENT
  Age: 91 Year
  Sex: Female

DRUGS (2)
  1. INVANZ [Suspect]
     Active Substance: ERTAPENEM SODIUM
     Indication: URINE ABNORMALITY
     Dosage: 1 G ONCE DAILY
     Route: 042
     Dates: start: 20141128, end: 20141204
  2. KEPPRA [Suspect]
     Active Substance: LEVETIRACETAM
     Indication: EPILEPSY
     Dosage: 500 MG, BID
     Route: 048
     Dates: start: 20141125

REACTIONS (2)
  - Cholestasis [Fatal]
  - Hepatitis toxic [Fatal]

NARRATIVE: CASE EVENT DATE: 20141128
